FAERS Safety Report 19519030 (Version 3)
Quarter: 2021Q3

REPORT INFORMATION
  Report Type: Spontaneous
  Country: US (occurrence: US)
  Receive Date: 20210712
  Receipt Date: 20210920
  Transmission Date: 20211014
  Serious: No
  Sender: FDA-Public Use
  Company Number: US-SA-2021SA226931

PATIENT
  Age: 43 Year
  Sex: Female

DRUGS (31)
  1. VITAMIN D3 [Concomitant]
     Active Substance: CHOLECALCIFEROL
  2. CETIRIZINE HCL [Concomitant]
     Active Substance: CETIRIZINE HYDROCHLORIDE
  3. NITROGLYCERIN. [Concomitant]
     Active Substance: NITROGLYCERIN
  4. DUPIXENT [Suspect]
     Active Substance: DUPILUMAB
     Dosage: 300 MG, QOW
     Route: 058
     Dates: start: 20210302
  5. AIMOVIG [Concomitant]
     Active Substance: ERENUMAB-AOOE
  6. SPIRONOLACTONE. [Concomitant]
     Active Substance: SPIRONOLACTONE
  7. VITAMINS NOS [Concomitant]
     Active Substance: VITAMINS
  8. HYDROCORTISONE. [Concomitant]
     Active Substance: HYDROCORTISONE
  9. MAGNESIUM GLYCINATE [Concomitant]
     Active Substance: MAGNESIUM GLYCINATE
  10. SELENIUM [Concomitant]
     Active Substance: SELENIUM
  11. DUPIXENT [Suspect]
     Active Substance: DUPILUMAB
     Indication: ASTHMA
     Dosage: 600 MG, 1X
     Route: 058
     Dates: start: 2021, end: 2021
  12. PEPCID [Concomitant]
     Active Substance: FAMOTIDINE
  13. BIOTIN [Concomitant]
     Active Substance: BIOTIN
  14. VITAMIN E NOS [Concomitant]
     Active Substance: .ALPHA.-TOCOPHEROL
  15. ALBUTEROL SULFATE. [Concomitant]
     Active Substance: ALBUTEROL SULFATE
  16. CHOLECALCIFEROL [Concomitant]
     Active Substance: CHOLECALCIFEROL
  17. ZINC ACETATE [Concomitant]
     Active Substance: ZINC ACETATE
  18. VITAMIN B COMPLEX [Concomitant]
     Active Substance: CYANOCOBALAMIN\DEXPANTHENOL\NIACINAMIDE\PYRIDOXINE HYDROCHLORIDE\RIBOFLAVIN 5^-PHOSPHATE SODIUM\THIAMINE HYDROCHLORIDE\VITAMIN B COMPLEX
  19. VYEPTI [Concomitant]
     Active Substance: EPTINEZUMAB-JJMR
  20. SPIRIVA [Concomitant]
     Active Substance: TIOTROPIUM BROMIDE MONOHYDRATE
  21. VITAMIN C [Concomitant]
     Active Substance: ASCORBIC ACID
  22. PANTOPRAZOLE SODIUM. [Concomitant]
     Active Substance: PANTOPRAZOLE SODIUM
  23. SYMBICORT [Concomitant]
     Active Substance: BUDESONIDE\FORMOTEROL FUMARATE DIHYDRATE
  24. SIMVASTATIN. [Concomitant]
     Active Substance: SIMVASTATIN
  25. CARVEDILOL. [Concomitant]
     Active Substance: CARVEDILOL
  26. LEVETIRACETAM. [Concomitant]
     Active Substance: LEVETIRACETAM
  27. AMLODIPINE BESILATE [Concomitant]
     Active Substance: AMLODIPINE BESYLATE
  28. MONTELUKAST SODIUM. [Concomitant]
     Active Substance: MONTELUKAST SODIUM
  29. METFORMIN HCL [Concomitant]
     Active Substance: METFORMIN HYDROCHLORIDE
  30. TELMISARTAN. [Concomitant]
     Active Substance: TELMISARTAN
  31. ALBUTEROL SULFATE HFA [Concomitant]
     Active Substance: ALBUTEROL SULFATE

REACTIONS (8)
  - Dyspnoea [Not Recovered/Not Resolved]
  - Pruritus [Recovering/Resolving]
  - Injection site dryness [Unknown]
  - Rash [Recovering/Resolving]
  - Cough [Unknown]
  - Middle insomnia [Unknown]
  - Asthma [Unknown]
  - Dry skin [Unknown]

NARRATIVE: CASE EVENT DATE: 2021
